FAERS Safety Report 6155145-5 (Version None)
Quarter: 2009Q2

REPORT INFORMATION
  Report Type: 
  Country: None (occurrence: None)
  Receive Date: 20090415
  Receipt Date: 20090403
  Transmission Date: 20091009
  Serious: Yes (Other)
  Sender: FDA-Public Use
  Company Number: US-RANBAXY-2008US-18523

PATIENT

DRUGS (7)
  1. ISOTRETINOIN [Suspect]
     Indication: DRUG USE FOR UNKNOWN INDICATION
     Dosage: 20 MG, QD
     Route: 048
     Dates: start: 20080306, end: 20080809
  2. ISOTRETINOIN [Suspect]
     Dosage: 40 MG QD
     Route: 048
     Dates: end: 20080809
  3. BIRTH CONTROL PILLS [Concomitant]
     Indication: CONTRACEPTION
     Route: 048
  4. AMNESTEEM [Suspect]
     Indication: DRUG USE FOR UNKNOWN INDICATION
     Dosage: 20 MG, UNK
  5. AMNESTEEM [Suspect]
     Dosage: 40 MG, UNK
     Route: 048
  6. ACCUTANE [Suspect]
     Indication: DRUG USE FOR UNKNOWN INDICATION
     Dosage: 30 MG, QD
  7. ISOTRETINOIN [Suspect]
     Dosage: 40 MG, QD
     Route: 048
     Dates: start: 20080306, end: 20080809

REACTIONS (1)
  - PREGNANCY [None]
